FAERS Safety Report 6685391-3 (Version None)
Quarter: 2010Q2

REPORT INFORMATION
  Report Type: 
  Country: None (occurrence: None)
  Receive Date: 20100416
  Receipt Date: 20100405
  Transmission Date: 20101027
  Serious: Yes (Hospitalization)
  Sender: FDA-Public Use
  Company Number: JP-AMGEN-US404580

PATIENT
  Age: 74 Year
  Sex: Female

DRUGS (2)
  1. ENBREL [Suspect]
     Indication: RHEUMATOID ARTHRITIS
     Route: 058
     Dates: start: 20100101
  2. PREDNISOLONE [Concomitant]
     Route: 048

REACTIONS (3)
  - HEPATIC FUNCTION ABNORMAL [None]
  - ORAL MUCOSA EROSION [None]
  - RASH GENERALISED [None]
